FAERS Safety Report 26044679 (Version 1)
Quarter: 2025Q4

REPORT INFORMATION
  Report Type: Spontaneous
  Country: CH (occurrence: CH)
  Receive Date: 20251114
  Receipt Date: 20251114
  Transmission Date: 20260117
  Serious: Yes (Hospitalization)
  Sender: CHEPLAPHARM
  Company Number: None

PATIENT
  Age: 87 Year
  Sex: Female

DRUGS (11)
  1. OLANZAPINE [Interacting]
     Active Substance: OLANZAPINE
     Dosage: DAILY DOSE: 5 MILLIGRAM
     Dates: start: 20251027
  2. OLANZAPINE [Interacting]
     Active Substance: OLANZAPINE
     Dosage: DAILY DOSE: 7.5 MILLIGRAM
     Dates: end: 20251026
  3. ARIPIPRAZOLE [Interacting]
     Active Substance: ARIPIPRAZOLE
     Dosage: DAILY DOSE: 5 MILLIGRAM
     Dates: start: 20251027
  4. ARIPIPRAZOLE [Interacting]
     Active Substance: ARIPIPRAZOLE
     Dosage: DAILY DOSE: 10 MILLIGRAM
     Dates: end: 20251026
  5. ESOMEPRAZOLE [Interacting]
     Active Substance: ESOMEPRAZOLE
     Dosage: DAILY DOSE: 40 MILLIGRAM
     Dates: end: 20251026
  6. MOTILIUM [Concomitant]
     Active Substance: DOMPERIDONE
     Dosage: RECENTLY SUSPENDED?DAILY DOSE: 10 MILLIGRAM
  7. TORSEMIDE [Concomitant]
     Active Substance: TORSEMIDE
     Dosage: DAILY DOSE: 2.5 MILLIGRAM
     Dates: end: 20251027
  8. OXAZEPAM [Concomitant]
     Active Substance: OXAZEPAM
     Dosage: 7.5 MG 3 TIMES/DAY (ON HAND
  9. CAFFEINE\MECLIZINE MONOHYDROCHLORIDE\PYRIDOXINE HYDROCHLORIDE [Concomitant]
     Active Substance: CAFFEINE\MECLIZINE MONOHYDROCHLORIDE\PYRIDOXINE HYDROCHLORIDE
     Dosage: MORNING
  10. ASPIRIN [Concomitant]
     Active Substance: ASPIRIN
     Dosage: DAILY DOSE: 100 MILLIGRAM
  11. VALPROATE SODIUM [Concomitant]
     Active Substance: VALPROATE SODIUM
     Dosage: DAILY DOSE: 900 MILLIGRAM

REACTIONS (2)
  - Electrocardiogram QT prolonged [Recovering/Resolving]
  - Drug interaction [Recovered/Resolved]

NARRATIVE: CASE EVENT DATE: 20251027
